FAERS Safety Report 23622377 (Version 1)
Quarter: 2024Q1

REPORT INFORMATION
  Report Type: Spontaneous
  Country: JP (occurrence: JP)
  Receive Date: 20240312
  Receipt Date: 20240312
  Transmission Date: 20240410
  Serious: Yes (Other)
  Sender: FDA-Public Use
  Company Number: JP-PFIZER INC-202400052433

PATIENT
  Age: 57 Year
  Sex: Male

DRUGS (1)
  1. VORICONAZOLE [Suspect]
     Active Substance: VORICONAZOLE
     Indication: Bronchopulmonary aspergillosis
     Dosage: UNK
     Route: 048

REACTIONS (3)
  - Squamous cell carcinoma of skin [Recovering/Resolving]
  - Photosensitivity reaction [Recovering/Resolving]
  - Actinic keratosis [Recovering/Resolving]
